FAERS Safety Report 6111778-3 (Version None)
Quarter: 2009Q1

REPORT INFORMATION
  Report Type: 
  Country: None (occurrence: None)
  Receive Date: 20090311
  Receipt Date: 20081223
  Transmission Date: 20090719
  Serious: No
  Sender: FDA-Public Use
  Company Number: US-TYCO HEALTHCARE/MALLINCKRODT-T200802161

PATIENT
  Sex: Female

DRUGS (3)
  1. ACETAMINOPHEN AND HYDROCODONE BITARTRATE [Suspect]
     Dosage: 1 TAB IN AM, 1 TAB IN PM, AS NEEDED
     Dates: start: 20081102, end: 20081110
  2. ACETAMINOPHEN AND HYDROCODONE BITARTRATE [Suspect]
     Dosage: 1 TAB IN AM, 1 TAB IN PM AS NEEDED
     Dates: start: 20081118, end: 20081120
  3. MIRAPEX [Concomitant]
     Dosage: 0.25 MG, UNK

REACTIONS (2)
  - MYALGIA [None]
  - SWELLING [None]
